FAERS Safety Report 6944069-9 (Version None)
Quarter: 2010Q3

REPORT INFORMATION
  Report Type: 
  Country: None (occurrence: None)
  Receive Date: 20100827
  Receipt Date: 20100818
  Transmission Date: 20110219
  Serious: No
  Sender: FDA-Public Use
  Company Number: US-BIOGENIDEC-2010BI012936

PATIENT
  Age: 50 Year
  Sex: Male

DRUGS (3)
  1. TYSABRI [Suspect]
     Indication: MULTIPLE SCLEROSIS
     Route: 042
     Dates: start: 20050103, end: 20050103
  2. TYSABRI [Suspect]
     Route: 042
     Dates: start: 20071029
  3. AVONEX [Concomitant]
     Indication: MULTIPLE SCLEROSIS

REACTIONS (6)
  - ABDOMINAL RIGIDITY [None]
  - CATARACT [None]
  - FLUID OVERLOAD [None]
  - MUSCLE RIGIDITY [None]
  - VISION BLURRED [None]
  - VISUAL IMPAIRMENT [None]
